FAERS Safety Report 9300660 (Version 1)
Quarter: 2013Q2

REPORT INFORMATION
  Report Type: Spontaneous
  Country: US (occurrence: None)
  Receive Date: 20130520
  Receipt Date: 20130520
  Transmission Date: 20140414
  Serious: Yes (Other)
  Sender: FDA-Public Use
  Company Number: None

PATIENT
  Age: 55 Year
  Sex: Female
  Weight: 77.57 kg

DRUGS (2)
  1. MONTELUKAST [Suspect]
     Indication: ASTHMA
     Route: 048
     Dates: start: 20121101, end: 20130101
  2. MONTELUKAST [Suspect]
     Indication: ASTHMA
     Route: 048
     Dates: start: 20130201, end: 20130516

REACTIONS (3)
  - Asthma [None]
  - Product substitution issue [None]
  - Therapeutic response unexpected with drug substitution [None]
